FAERS Safety Report 7813917-2 (Version None)
Quarter: 2011Q4

REPORT INFORMATION
  Report Type: 
  Country: None (occurrence: None)
  Receive Date: 20111014
  Receipt Date: 20111011
  Transmission Date: 20120403
  Serious: Yes (Other)
  Sender: FDA-Public Use
  Company Number: US-PFIZER INC-2011227706

PATIENT
  Sex: Female
  Weight: 107 kg

DRUGS (19)
  1. LANTUS [Concomitant]
     Dosage: UNK
  2. CALCIUM [Concomitant]
     Dosage: UNK
  3. DULCOLAX [Concomitant]
     Dosage: UNK
  4. OMEPRAZOLE [Concomitant]
     Dosage: UNK
  5. LEVOTHYROXINE [Concomitant]
     Dosage: UNK
  6. AMBIEN [Concomitant]
     Dosage: UNK
  7. CHANTIX [Suspect]
     Indication: SMOKING CESSATION THERAPY
     Dosage: 0.5 MG, 1X/DAY
     Route: 048
     Dates: start: 20110922
  8. FUROSEMIDE [Concomitant]
     Dosage: UNK
  9. OXYCODONE [Concomitant]
     Dosage: UNK
  10. MELATONIN [Concomitant]
     Dosage: UNK
  11. LISINOPRIL [Concomitant]
     Dosage: UNK
  12. HUMALOG [Concomitant]
     Dosage: UNK
  13. TRILIPIX [Concomitant]
     Dosage: UNK
  14. PRAVASTATIN [Concomitant]
     Dosage: UNK
  15. VUSION [Concomitant]
     Dosage: UNK
  16. VITAMIN D [Concomitant]
     Dosage: UNK
  17. NASACORT AQ [Concomitant]
     Dosage: UNK
  18. NYSTATIN [Concomitant]
     Dosage: UNK
  19. ONGLYZA [Concomitant]
     Dosage: UNK

REACTIONS (2)
  - JOINT SWELLING [None]
  - OEDEMA PERIPHERAL [None]
